FAERS Safety Report 4572267-0 (Version None)
Quarter: 2005Q1

REPORT INFORMATION
  Report Type: 
  Country: None (occurrence: None)
  Receive Date: 20050203
  Receipt Date: 20050119
  Transmission Date: 20050727
  Serious: Yes (Death)
  Sender: FDA-Public Use
  Company Number: MK200412-0318-1

PATIENT
  Age: 16 Year
  Sex: Male

DRUGS (3)
  1. ANAFRANIL [Suspect]
     Indication: DEPRESSION
     Dosage: 225 MG, QD
     Dates: start: 20010715, end: 20030715
  2. RISPERDAL [Suspect]
  3. TRICYCLIC ANTIDEPRESSANT [Concomitant]

REACTIONS (14)
  - BLOOD PRESSURE DECREASED [None]
  - BRAIN OEDEMA [None]
  - CONVULSION [None]
  - DISSEMINATED INTRAVASCULAR COAGULATION [None]
  - GASTROINTESTINAL HAEMORRHAGE [None]
  - HEAT STROKE [None]
  - LOSS OF CONSCIOUSNESS [None]
  - MULTI-ORGAN FAILURE [None]
  - MUSCLE SPASMS [None]
  - NEUROLEPTIC MALIGNANT SYNDROME [None]
  - OVERDOSE [None]
  - RENAL FAILURE [None]
  - RESPIRATORY DISORDER [None]
  - SHOCK [None]
